FAERS Safety Report 7575041-6 (Version None)
Quarter: 2011Q2

REPORT INFORMATION
  Report Type: 
  Country: None (occurrence: None)
  Receive Date: 20110627
  Receipt Date: 20110406
  Transmission Date: 20111010
  Serious: Yes (Hospitalization, Other)
  Sender: FDA-Public Use
  Company Number: JP-ASTRAZENECA-2011SE12892

PATIENT
  Age: 53 Year
  Sex: Male

DRUGS (27)
  1. NOREPINEPHRINE BITARTRATE [Concomitant]
     Dates: start: 20110207
  2. CONCENTRATED HUMAN PLATELETS [Concomitant]
     Dates: start: 20110207
  3. FUNGIZONE [Concomitant]
     Route: 048
     Dates: start: 20110209
  4. FUNGUARD [Concomitant]
     Dates: start: 20110209
  5. PENTAZOCINE LACTATE [Concomitant]
     Dates: start: 20110211, end: 20110211
  6. HUMULIN R [Concomitant]
     Dates: start: 20110206
  7. DOPAMINE HYDROCHLORIDE [Concomitant]
     Dates: start: 20110207
  8. CONCENTRATED HUMAN RED BLOOD CELLS [Concomitant]
     Dates: start: 20110207
  9. NITRAZEPAM [Concomitant]
     Dates: start: 20110205
  10. MEROPENEM [Suspect]
     Route: 042
     Dates: start: 20110214, end: 20110214
  11. FRESH FROZEN HUMAN PLASMA [Concomitant]
     Dates: start: 20110207
  12. NEUART [Concomitant]
     Route: 042
     Dates: start: 20110206, end: 20110208
  13. MEROPENEM [Suspect]
     Indication: FEBRILE NEUTROPENIA
     Route: 042
     Dates: start: 20110209, end: 20110209
  14. OMEPRAZOLE [Concomitant]
     Route: 042
     Dates: start: 20110209
  15. METHYLPREDNISOLONE SODIUM SUCCINATE [Concomitant]
     Route: 042
     Dates: start: 20110209
  16. MEROPENEM [Suspect]
     Route: 042
     Dates: start: 20110210, end: 20110213
  17. KENKETSU VENOGLOBULIN-IH [Concomitant]
     Route: 042
     Dates: start: 20110207, end: 20110209
  18. MARZULENE [Concomitant]
     Route: 048
     Dates: start: 20110209
  19. PROPOFOL [Concomitant]
     Dates: start: 20110205
  20. SOLYUGEN F [Concomitant]
     Dates: start: 20110205
  21. POLYMYXIN B SULFATE [Concomitant]
     Route: 048
     Dates: start: 20110209
  22. DIGOXIN [Concomitant]
     Route: 042
     Dates: start: 20110211
  23. RIKKUNSHI-TO [Concomitant]
     Route: 048
     Dates: start: 20110209
  24. BOSMIN [Concomitant]
     Dates: start: 20110214
  25. REMINARON [Concomitant]
     Dates: start: 20110206
  26. BIOFERMIN R [Concomitant]
     Route: 048
     Dates: start: 20110209
  27. VERAPAMIL HCL [Concomitant]
     Dates: start: 20110210, end: 20110210

REACTIONS (5)
  - ATRIAL FIBRILLATION [None]
  - ANAEMIA [None]
  - PLATELET COUNT DECREASED [None]
  - HEPATIC FUNCTION ABNORMAL [None]
  - RENAL IMPAIRMENT [None]
